FAERS Safety Report 7708689-6 (Version None)
Quarter: 2011Q3

REPORT INFORMATION
  Report Type: 
  Country: None (occurrence: None)
  Receive Date: 20110819
  Receipt Date: 20110804
  Transmission Date: 20111222
  Serious: Yes (Hospitalization, Other)
  Sender: FDA-Public Use
  Company Number: 2011MA009047

PATIENT
  Sex: Female

DRUGS (3)
  1. COD LIVER OIL (NO PREF. NAME) [Suspect]
     Indication: EPSTEIN-BARR VIRUS INFECTION
  2. CENTRUM (CENTRUM) [Suspect]
  3. ACYCLOVIR [Suspect]
     Indication: EPSTEIN-BARR VIRUS INFECTION

REACTIONS (2)
  - INFECTIOUS MONONUCLEOSIS [None]
  - CONVULSION [None]
